FAERS Safety Report 8429206-1 (Version None)
Quarter: 2012Q2

REPORT INFORMATION
  Report Type: 
  Country: None (occurrence: None)
  Receive Date: 20120612
  Receipt Date: 20120605
  Transmission Date: 20120825
  Serious: Yes (Other)
  Sender: FDA-Public Use
  Company Number: PHHY2011CA45736

PATIENT
  Sex: Female

DRUGS (8)
  1. HYDROMORPHONE HCL [Concomitant]
     Dosage: 2 MG, 6QD
  2. HYDROMORPHONE HCL [Concomitant]
     Indication: BREAKTHROUGH PAIN
     Dosage: 1 MG, BID
     Route: 048
  3. ATIVAN [Concomitant]
     Dosage: 0.5 MG, QD
     Route: 060
  4. AFATINIB [Concomitant]
  5. ATIVAN [Concomitant]
     Dosage: 0.5 MG, TID
  6. ZOMETA [Suspect]
     Indication: METASTASES TO BONE
     Dosage: 4 MG, EVERY 4 WEEKS
     Route: 042
     Dates: start: 20110524, end: 20120301
  7. NUTRITION SUPPLEMENTS [Concomitant]
  8. ZOMETA [Suspect]
     Indication: LUNG NEOPLASM MALIGNANT

REACTIONS (14)
  - POOR QUALITY SLEEP [None]
  - BLOOD PRESSURE INCREASED [None]
  - PRURITUS GENERALISED [None]
  - VEIN DISORDER [None]
  - BACK PAIN [None]
  - MALAISE [None]
  - PERFORMANCE STATUS DECREASED [None]
  - DISCOMFORT [None]
  - GASTROINTESTINAL MOTILITY DISORDER [None]
  - FATIGUE [None]
  - SOMNOLENCE [None]
  - APPLICATION SITE DRYNESS [None]
  - PAIN [None]
  - RADIATION INJURY [None]
